FAERS Safety Report 5613385-5 (Version None)
Quarter: 2008Q1

REPORT INFORMATION
  Report Type: 
  Country: None (occurrence: None)
  Receive Date: 20080129
  Receipt Date: 20070916
  Transmission Date: 20080703
  Serious: Yes (Life-Threatening, Hospitalization)
  Sender: FDA-Public Use
  Company Number: IL-JNJFOC-20070901221

PATIENT
  Age: 59 Year
  Sex: Female
  Weight: 58 kg

DRUGS (2)
  1. DECITABINE (DECITABINE) LYOPHILIZED POWDER [Suspect]
     Indication: MYELODYSPLASTIC SYNDROME
     Dosage: INTRAVENOUS
     Route: 042
     Dates: start: 20070812, end: 20070816
  2. HEXAKAPRON (TRANEXAMIC ACID) [Concomitant]

REACTIONS (4)
  - NEUTROPENIA [None]
  - PYREXIA [None]
  - SKIN HAEMORRHAGE [None]
  - THROMBOCYTOPENIA [None]
